FAERS Safety Report 15113993 (Version 1)
Quarter: 2018Q3

REPORT INFORMATION
  Report Type: Spontaneous
  Country: US (occurrence: US)
  Receive Date: 20180706
  Receipt Date: 20180706
  Transmission Date: 20181010
  Serious: Yes (Hospitalization, Other)
  Sender: FDA-Public Use
  Company Number: US-AXELLIA-001763

PATIENT
  Age: 39 Year
  Sex: Female
  Weight: 70 kg

DRUGS (2)
  1. PIPERACILLIN/TAZOBACTAM [Concomitant]
     Indication: PNEUMONIA
  2. VANCOMYCIN [Suspect]
     Active Substance: VANCOMYCIN
     Indication: STAPHYLOCOCCAL INFECTION
     Dosage: 1500 MG IV EVERY 12 HOURS
     Route: 042

REACTIONS (3)
  - Drug clearance decreased [Not Recovered/Not Resolved]
  - Hypothermia [Not Recovered/Not Resolved]
  - Drug level above therapeutic [Not Recovered/Not Resolved]
